FAERS Safety Report 5941552-X (Version None)
Quarter: 2008Q4

REPORT INFORMATION
  Report Type: 
  Country: None (occurrence: None)
  Receive Date: 20081105
  Receipt Date: 20081029
  Transmission Date: 20090506
  Serious: Yes (Other)
  Sender: FDA-Public Use
  Company Number: GB-NOVOPROD-280783

PATIENT
  Sex: Male

DRUGS (1)
  1. NOVORAPID [Suspect]
     Indication: TYPE 1 DIABETES MELLITUS

REACTIONS (4)
  - CHEST PAIN [None]
  - DYSPNOEA [None]
  - INJECTION SITE REACTION [None]
  - PAIN IN EXTREMITY [None]
